FAERS Safety Report 16049498 (Version 2)
Quarter: 2019Q4

REPORT INFORMATION
  Report Type: Other
  Country: US (occurrence: US)
  Receive Date: 20190307
  Receipt Date: 20191007
  Transmission Date: 20200122
  Serious: Yes (Other)
  Sender: FDA-Public Use
  Company Number: US-SHIRE-US201907018

PATIENT

DRUGS (1)
  1. CEPROTIN [Suspect]
     Active Substance: PROTEIN C
     Indication: PRODUCT USED FOR UNKNOWN INDICATION
     Dosage: 10 MILLILITER
     Route: 065

REACTIONS (1)
  - Haemorrhage [Unknown]
